FAERS Safety Report 5082092-2 (Version None)
Quarter: 2006Q3

REPORT INFORMATION
  Report Type: 
  Country: None (occurrence: None)
  Receive Date: 20060811
  Receipt Date: 20060801
  Transmission Date: 20061208
  Serious: Yes (Hospitalization)
  Sender: FDA-Public Use
  Company Number: 2006094865

PATIENT
  Age: 82 Year
  Sex: Female
  Weight: 70 kg

DRUGS (7)
  1. ALDACTONE [Suspect]
     Indication: ESSENTIAL HYPERTENSION
     Dosage: 100 MG (50 MG, 2 IN 1 D), ORAL
     Route: 048
  2. AMLODIPINE [Suspect]
     Indication: ESSENTIAL HYPERTENSION
     Dosage: 5 MG (5 MG, 1 IN 1 D), ORAL
     Route: 048
  3. DIGOXIN [Suspect]
     Indication: CARDIAC DISORDER
     Dosage: 0.06 MG (0.06 MG, 1 IN 1 D), ORAL
     Route: 048
  4. GLICLAZIDE (GLICLAZIDE) [Suspect]
     Indication: DIABETES MELLITUS
     Dosage: 60 MG (30 MG, 2 IN 2 D), ORAL
     Route: 048
  5. THERALENE (ALIMEMAZINE TARTRATE) [Suspect]
     Indication: DRUG USE FOR UNKNOWN INDICATION
     Dosage: 25 MG (INTERVAL: EVERY DAY),ORAL
     Route: 048
  6. CORDARONE [Suspect]
     Indication: CARDIAC DISORDER
     Dosage: 200 MG (200 MG, 1 IN 1 D), ORAL
     Route: 048
  7. ALPRAZOLAM [Concomitant]

REACTIONS (4)
  - ASTERIXIS [None]
  - HEAD DISCOMFORT [None]
  - HEADACHE [None]
  - MALAISE [None]
